FAERS Safety Report 9829268 (Version 11)
Quarter: 2014Q4

REPORT INFORMATION
  Report Type: Report from Study
  Country: CA (occurrence: CA)
  Receive Date: 20140120
  Receipt Date: 20141008
  Transmission Date: 20150529
  Serious: Yes (Other)
  Sender: FDA-Public Use
  Company Number: CA-ROCHE-1331551

PATIENT
  Age: 62 Year
  Sex: Female

DRUGS (13)
  1. KADCYLA [Suspect]
     Active Substance: ADO-TRASTUZUMAB EMTANSINE
     Indication: HER-2 POSITIVE BREAST CANCER
     Dosage: LAST DOSE:10-SEP-2014
     Route: 042
     Dates: start: 20140611, end: 20140910
  2. LAPATINIB [Concomitant]
     Active Substance: LAPATINIB
     Route: 048
     Dates: start: 201305, end: 201306
  3. LAPATINIB [Concomitant]
     Active Substance: LAPATINIB
     Route: 048
     Dates: start: 201409
  4. VASOTEC [Concomitant]
     Active Substance: ENALAPRIL MALEATE
     Route: 048
  5. HERCEPTIN [Suspect]
     Active Substance: TRASTUZUMAB
     Indication: BREAST CANCER
     Route: 065
     Dates: start: 2009, end: 201007
  6. PROCYTOX [Concomitant]
     Active Substance: CYCLOPHOSPHAMIDE
     Route: 065
     Dates: end: 20140609
  7. XELODA [Suspect]
     Active Substance: CAPECITABINE
     Indication: BREAST CANCER
     Route: 048
     Dates: start: 201409
  8. CARVEDILOL. [Concomitant]
     Active Substance: CARVEDILOL
     Route: 048
  9. ALDOSTERONE [Concomitant]
     Active Substance: ALDOSTERONE
     Dosage: 1/2 TAB DAILY
     Route: 048
  10. METHOTREXATE [Concomitant]
     Active Substance: METHOTREXATE
     Route: 065
     Dates: end: 20140609
  11. HERCEPTIN [Suspect]
     Active Substance: TRASTUZUMAB
     Route: 065
     Dates: start: 201305, end: 201306
  12. VINORELBINE [Suspect]
     Active Substance: VINORELBINE\VINORELBINE TARTRATE
     Indication: BREAST CANCER
     Route: 065
     Dates: start: 201305, end: 201308
  13. GEMCITABINE [Suspect]
     Active Substance: GEMCITABINE\GEMCITABINE HYDROCHLORIDE
     Indication: PRODUCT USED FOR UNKNOWN INDICATION
     Route: 065
     Dates: start: 201312, end: 201401

REACTIONS (31)
  - Rash [Recovering/Resolving]
  - Malignant neoplasm progression [Not Recovered/Not Resolved]
  - Peripheral swelling [Recovering/Resolving]
  - Erythema [Unknown]
  - Dyspnoea [Unknown]
  - Malaise [Not Recovered/Not Resolved]
  - Ill-defined disorder [Not Recovered/Not Resolved]
  - Pneumonia [Unknown]
  - Back pain [Not Recovered/Not Resolved]
  - Chills [Recovered/Resolved]
  - Rib fracture [Not Recovered/Not Resolved]
  - Neoplasm malignant [Not Recovered/Not Resolved]
  - Drug ineffective [Unknown]
  - Vascular access complication [Unknown]
  - Rash [Not Recovered/Not Resolved]
  - Disease progression [Unknown]
  - Dermatitis contact [Unknown]
  - Diarrhoea [Unknown]
  - Fatigue [Unknown]
  - Lymphadenopathy [Unknown]
  - Joint range of motion decreased [Not Recovered/Not Resolved]
  - Axillary pain [Unknown]
  - Arthropathy [Unknown]
  - Chest pain [Not Recovered/Not Resolved]
  - Abdominal pain upper [Not Recovered/Not Resolved]
  - Heart rate decreased [Unknown]
  - Cardiac disorder [Unknown]
  - Metastases to stomach [Not Recovered/Not Resolved]
  - Blood pressure increased [Unknown]
  - Headache [Recovered/Resolved]
  - Epistaxis [Unknown]

NARRATIVE: CASE EVENT DATE: 2010
